FAERS Safety Report 11814845 (Version 1)
Quarter: 2015Q4

REPORT INFORMATION
  Report Type: Spontaneous
  Country: US (occurrence: US)
  Receive Date: 20151209
  Receipt Date: 20151209
  Transmission Date: 20160305
  Serious: No
  Sender: FDA-Public Use
  Company Number: US-SA-2015SA130329

PATIENT
  Age: 72 Year
  Sex: Female

DRUGS (2)
  1. TOUJEO [Suspect]
     Active Substance: INSULIN GLARGINE
     Indication: TYPE 2 DIABETES MELLITUS
     Dosage: DOSE:24 UNIT(S)
     Route: 065
     Dates: start: 201504
  2. SOLOSTAR [Concomitant]
     Active Substance: DEVICE
     Dates: start: 201504

REACTIONS (5)
  - Palpitations [Unknown]
  - Tremor [Unknown]
  - Nausea [Unknown]
  - Feeling jittery [Unknown]
  - Blood glucose increased [Unknown]

NARRATIVE: CASE EVENT DATE: 2015
